FAERS Safety Report 4427249-6 (Version None)
Quarter: 2004Q3

REPORT INFORMATION
  Report Type: 
  Country: None (occurrence: None)
  Receive Date: 20040813
  Receipt Date: 20040813
  Transmission Date: 20050211
  Serious: Yes (Death)
  Sender: FDA-Public Use
  Company Number: None

PATIENT
  Sex: Female

DRUGS (5)
  1. GATIFLOXACIN [Suspect]
     Indication: BRONCHITIS
     Dosage: 400MG  QD  ORAL
     Route: 048
     Dates: start: 20040529, end: 20040531
  2. COUMADIN [Suspect]
     Dosage: 6MG  QD AD
  3. COUMADIN [Concomitant]
  4. AZITHRAMYCIN [Concomitant]
  5. GATIFLOXACIN [Concomitant]

REACTIONS (2)
  - DRUG INTERACTION [None]
  - HAEMORRHAGE INTRACRANIAL [None]
